FAERS Safety Report 4714845-1 (Version None)
Quarter: 2005Q3

REPORT INFORMATION
  Report Type: 
  Country: None (occurrence: None)
  Receive Date: 20050715
  Receipt Date: 20050701
  Transmission Date: 20060218
  Serious: Yes (Other)
  Sender: FDA-Public Use
  Company Number: GBWYE790601JUL05

PATIENT
  Sex: Female
  Weight: 68 kg

DRUGS (3)
  1. ENBREL [Suspect]
     Indication: DRUG USE FOR UNKNOWN INDICATION
     Route: 058
     Dates: start: 20050531, end: 20050627
  2. METHOTREXATE [Concomitant]
     Route: 048
     Dates: start: 19981014
  3. FERROUS SULFATE TAB [Concomitant]
     Indication: IRON DEFICIENCY ANAEMIA
     Route: 048
     Dates: start: 20050307

REACTIONS (4)
  - HEADACHE [None]
  - INJECTION SITE REACTION [None]
  - MENORRHAGIA [None]
  - NAUSEA [None]
